FAERS Safety Report 9743183 (Version 1)
Quarter: 2013Q4

REPORT INFORMATION
  Report Type: Spontaneous
  Country: US (occurrence: US)
  Receive Date: 20131210
  Receipt Date: 20131210
  Transmission Date: 20140711
  Serious: No
  Sender: FDA-Public Use
  Company Number: US-GILEAD-2009-0024941

PATIENT
  Age: 71 Year
  Sex: Female

DRUGS (7)
  1. LETAIRIS [Suspect]
     Indication: COR PULMONALE CHRONIC
     Route: 048
     Dates: start: 20090415, end: 20090707
  2. REVATIO [Concomitant]
  3. AMLODIPINE [Concomitant]
  4. PLAVIX [Concomitant]
  5. GLIMEPIRIDE [Concomitant]
  6. FUROSEMIDE [Concomitant]
  7. KLOR-CON [Concomitant]

REACTIONS (1)
  - Unevaluable event [Unknown]
